FAERS Safety Report 15112138 (Version 2)
Quarter: 2018Q3

REPORT INFORMATION
  Report Type: Report from Study
  Country: IT (occurrence: IT)
  Receive Date: 20180705
  Receipt Date: 20180816
  Transmission Date: 20181010
  Serious: Yes (Other)
  Sender: FDA-Public Use
  Company Number: IT-TEVA-2018-IT-921457

PATIENT
  Age: 3 Year
  Sex: Male
  Weight: 14 kg

DRUGS (1)
  1. ATENOL _100 MG COMPRESSE_ 50 COMPRESSE [Suspect]
     Active Substance: ATENOLOL
     Indication: DRUG ABUSE
     Route: 048
     Dates: start: 20170805, end: 20170805

REACTIONS (1)
  - Sopor [Recovering/Resolving]

NARRATIVE: CASE EVENT DATE: 20170805
